FAERS Safety Report 5659431-4 (Version None)
Quarter: 2008Q1

REPORT INFORMATION
  Report Type: 
  Country: None (occurrence: None)
  Receive Date: 20080311
  Receipt Date: 20080221
  Transmission Date: 20080703
  Serious: Yes (Hospitalization)
  Sender: FDA-Public Use
  Company Number: GB-RANBAXY-2008RR-13240

PATIENT

DRUGS (12)
  1. CEFALEXIN CAPSULES BP 500MG [Suspect]
     Indication: URINARY TRACT INFECTION
     Dosage: 500 MG, TID
     Route: 048
     Dates: start: 20080108, end: 20080112
  2. IKOREL [Suspect]
     Indication: ANGINA PECTORIS
     Dosage: 10 MG, BID
     Route: 048
     Dates: end: 20080116
  3. ARTHROTEC [Concomitant]
  4. ASPIRIN [Concomitant]
     Indication: CARDIOVASCULAR DISORDER
     Dosage: 75 MG, QD
     Route: 048
  5. DESLORATADINE [Concomitant]
     Indication: SEASONAL ALLERGY
     Dosage: 5 MG, QD
     Route: 048
  6. DIORALYTE [Concomitant]
     Indication: DIARRHOEA
     Dosage: 1 DF, PRN
     Route: 048
     Dates: start: 20071201
  7. DOMPERIDONE 10MG TABLETS [Concomitant]
     Indication: NAUSEA
     Dosage: 10 MG, PRN
     Route: 048
     Dates: start: 20071201
  8. FERROUS SULPHATE 200MG TABLETS [Concomitant]
     Indication: ANAEMIA
     Dosage: 200 MG, TID
     Route: 048
     Dates: start: 20080101
  9. NITROGLYCERIN [Concomitant]
     Indication: ANGINA PECTORIS
     Dosage: 2 DF, PRN
     Route: 060
  10. LOPERAMIDE HCL [Concomitant]
     Indication: DIARRHOEA
     Dosage: 2 MG, PRN
     Route: 048
     Dates: start: 20071201
  11. SIMVASTATIN [Concomitant]
     Indication: CARDIOVASCULAR DISORDER
     Dosage: 10 MG, QD
     Route: 048
  12. TRAMADOL HYDROCHLORIDE CAPSULES 50MG [Concomitant]
     Indication: ABDOMINAL PAIN
     Dosage: 50 MG, BID
     Route: 048

REACTIONS (3)
  - GASTRITIS [None]
  - OESOPHAGEAL ULCER [None]
  - TONGUE ULCERATION [None]
